FAERS Safety Report 10103501 (Version 1)
Quarter: 2014Q2

REPORT INFORMATION
  Report Type: Spontaneous
  Country: US (occurrence: US)
  Receive Date: 20140424
  Receipt Date: 20140424
  Transmission Date: 20141212
  Serious: No
  Sender: FDA-Public Use
  Company Number: US-BRISTOL-MYERS SQUIBB COMPANY-20468393

PATIENT
  Age: 85 Year
  Sex: Female

DRUGS (7)
  1. ELIQUIS [Suspect]
     Dates: start: 2013
  2. CELEBREX [Concomitant]
  3. LIPITOR [Concomitant]
  4. LISINOPRIL [Concomitant]
  5. EVISTA [Concomitant]
  6. TOPROL [Concomitant]
  7. FISH OIL [Concomitant]

REACTIONS (1)
  - Rash [Unknown]
